FAERS Safety Report 17726272 (Version 1)
Quarter: 2020Q2

REPORT INFORMATION
  Report Type: Spontaneous
  Country: CA (occurrence: CA)
  Receive Date: 20200429
  Receipt Date: 20200429
  Transmission Date: 20200714
  Serious: Yes (Death, Disabling, Other)
  Sender: FDA-Public Use
  Company Number: CA-AUROBINDO-AUR-APL-2020-020750

PATIENT
  Age: 69 Year
  Sex: Female

DRUGS (4)
  1. CLOZAPINE. [Suspect]
     Active Substance: CLOZAPINE
     Indication: SCHIZOPHRENIA
     Dosage: UNK
     Route: 048
  2. QUETIAPINE. [Suspect]
     Active Substance: QUETIAPINE
     Indication: PRODUCT USED FOR UNKNOWN INDICATION
     Dosage: 50 MILLIGRAM, 3 TIMES A DAY
     Route: 048
  3. QUETIAPINE. [Suspect]
     Active Substance: QUETIAPINE
     Dosage: 100 MILLIGRAM, TWO TIMES A DAY
     Route: 048
  4. CLOZAPINE. [Suspect]
     Active Substance: CLOZAPINE
     Dosage: UNK
     Route: 048

REACTIONS (12)
  - Extrapyramidal disorder [Fatal]
  - Gait inability [Fatal]
  - Hallucination [Fatal]
  - Tremor [Fatal]
  - Aggression [Fatal]
  - Depression [Fatal]
  - Paranoia [Fatal]
  - Dehydration [Fatal]
  - Neutrophil count decreased [Fatal]
  - Bronchitis [Fatal]
  - Death [Fatal]
  - Dysphagia [Fatal]
